FAERS Safety Report 9153965 (Version 1)
Quarter: 2013Q1

REPORT INFORMATION
  Report Type: Spontaneous
  Country: US (occurrence: None)
  Receive Date: 20130306
  Receipt Date: 20130306
  Transmission Date: 20140127
  Serious: No
  Sender: FDA-Public Use
  Company Number: None

PATIENT
  Age: 49 Year
  Sex: Female
  Weight: 92.08 kg

DRUGS (1)
  1. CEFTRIAXONE [Suspect]
     Indication: OSTEOMYELITIS
     Dosage: 2000MG  Q24H  IV
     Route: 042
     Dates: start: 20130301, end: 20130304

REACTIONS (1)
  - Rash generalised [None]
